FAERS Safety Report 24463364 (Version 1)
Quarter: 2024Q4

REPORT INFORMATION
  Report Type: Report from Study
  Country: US (occurrence: US)
  Receive Date: 20241018
  Receipt Date: 20241018
  Transmission Date: 20250114
  Serious: No
  Sender: ROCHE
  Company Number: US-ROCHE-3285945

PATIENT
  Sex: Female
  Weight: 80.7 kg

DRUGS (12)
  1. XOLAIR [Suspect]
     Active Substance: OMALIZUMAB
     Indication: Asthma
     Dosage: 375MG EVERY ONCE A DAY FOR 30 DAYS (4 WEEKS)
     Route: 058
  2. XOLAIR [Suspect]
     Active Substance: OMALIZUMAB
     Dosage: 375MG EVERY 2 WEEKS SUBCUTANEOUSLY
     Route: 058
  3. ALBUTEROL [Concomitant]
     Active Substance: ALBUTEROL
  4. FUROSEMIDE [Concomitant]
     Active Substance: FUROSEMIDE
  5. SOLIFENACIN [Concomitant]
     Active Substance: SOLIFENACIN
  6. DULOXETINE [Concomitant]
     Active Substance: DULOXETINE
  7. LOSARTAN [Concomitant]
     Active Substance: LOSARTAN
  8. LEVOTHYROXINE [Concomitant]
     Active Substance: LEVOTHYROXINE
  9. TRELEGY ELLIPTA [Concomitant]
     Active Substance: FLUTICASONE FUROATE\UMECLIDINIUM BROMIDE\VILANTEROL TRIFENATATE
  10. ADEMPAS [Concomitant]
     Active Substance: RIOCIGUAT
  11. OPSUMIT [Concomitant]
     Active Substance: MACITENTAN
  12. ELIQUIS [Concomitant]
     Active Substance: APIXABAN

REACTIONS (2)
  - Off label use [Unknown]
  - No adverse event [Unknown]
